FAERS Safety Report 13659450 (Version 1)
Quarter: 2017Q2

REPORT INFORMATION
  Report Type: Report from Study
  Country: CN (occurrence: CN)
  Receive Date: 20170616
  Receipt Date: 20170616
  Transmission Date: 20170830
  Serious: Yes (Other)
  Sender: FDA-Public Use
  Company Number: CN-ROCHE-1951857

PATIENT

DRUGS (1)
  1. PEG-INTERFERON ALFA 2A [Suspect]
     Active Substance: PEGINTERFERON ALFA-2A
     Indication: HEPATITIS B
     Route: 058

REACTIONS (1)
  - Leukopenia [Unknown]
